FAERS Safety Report 18512046 (Version 1)
Quarter: 2020Q4

REPORT INFORMATION
  Report Type: Spontaneous
  Country: JP (occurrence: JP)
  Receive Date: 20201117
  Receipt Date: 20201117
  Transmission Date: 20210114
  Serious: Yes (Death, Other)
  Sender: FDA-Public Use
  Company Number: JP-PFIZER INC-2020451901

PATIENT
  Age: 9 Decade
  Sex: Male
  Weight: 53 kg

DRUGS (8)
  1. MIRABEGRON [Concomitant]
     Active Substance: MIRABEGRON
     Dosage: 50 MG/DAY, UNKNOWN FREQ.
  2. TEPRENONE [Concomitant]
     Active Substance: TEPRENONE
     Dosage: UNK UNK, UNKNOWN FREQ.
  3. PIPERACILLIN SODIUM/TAZOBACTAM SODIUM [Concomitant]
     Active Substance: PIPERACILLIN SODIUM\TAZOBACTAM SODIUM
     Indication: PYELONEPHRITIS
     Dosage: 2.25 G, 3X/DAY
  4. SITAGLIPTIN PHOSPHATE MONOHYDRATE [Concomitant]
     Active Substance: SITAGLIPTIN PHOSPHATE
     Dosage: 50 MG/DAY, UNKNOWN FREQ.
  5. CILOSTAZOL. [Concomitant]
     Active Substance: CILOSTAZOL
     Dosage: 100 MG/DAY, UNKNOWN FREQ.
  6. CELECOXIB. [Suspect]
     Active Substance: CELECOXIB
     Dosage: 100 MG/DAY, UNKNOWN FREQ.
  7. THROMBOMODULIN ALFA RECOMBINANT [Suspect]
     Active Substance: THROMBOMODULIN ALFA
     Indication: DISSEMINATED INTRAVASCULAR COAGULATION
     Dosage: UNK UNK, UNKNOWN FREQ.
     Route: 065
  8. MEROPENEM. [Concomitant]
     Active Substance: MEROPENEM
     Indication: EMPHYSEMATOUS PYELONEPHRITIS
     Dosage: 0.5 G, EVERY 12 HOURS

REACTIONS (1)
  - Duodenal ulcer [Fatal]
